FAERS Safety Report 15284511 (Version 1)
Quarter: 2018Q3

REPORT INFORMATION
  Report Type: Spontaneous
  Country: US (occurrence: US)
  Receive Date: 20180801
  Receipt Date: 20180801
  Transmission Date: 20181010
  Serious: Yes (Other)
  Sender: FDA-Public Use
  Company Number: None

PATIENT
  Age: 63 Year
  Sex: Female
  Weight: 50.4 kg

DRUGS (7)
  1. BIOTIN [Concomitant]
     Active Substance: BIOTIN
  2. VITAMIN D2 [Concomitant]
     Active Substance: ERGOCALCIFEROL
  3. VITAMIN B12 [Concomitant]
     Active Substance: CYANOCOBALAMIN
  4. RESTASIS [Concomitant]
     Active Substance: CYCLOSPORINE
  5. COPAXONE [Concomitant]
     Active Substance: GLATIRAMER ACETATE
  6. TRAZEDONE [Concomitant]
  7. XIIDRA [Suspect]
     Active Substance: LIFITEGRAST
     Indication: DRY EYE
     Dosage: ?          QUANTITY:1 GTT DROP(S);?
     Route: 047
     Dates: start: 20180729, end: 20180730

REACTIONS (2)
  - Eye pain [None]
  - Vision blurred [None]

NARRATIVE: CASE EVENT DATE: 20180729
